FAERS Safety Report 12226073 (Version 1)
Quarter: 2016Q1

REPORT INFORMATION
  Report Type: Spontaneous
  Country: IT (occurrence: IT)
  Receive Date: 20160331
  Receipt Date: 20160331
  Transmission Date: 20160526
  Serious: Yes (Hospitalization)
  Sender: FDA-Public Use
  Company Number: IT-DEP_13958_2016

PATIENT
  Age: 55 Year
  Sex: Female
  Weight: 80 kg

DRUGS (7)
  1. CEFAMEZIN (CEFAZOLIN SODIUM) [Suspect]
     Active Substance: CEFAZOLIN SODIUM
     Indication: ANTIBIOTIC PROPHYLAXIS
     Dosage: 1000MG/ 4 ML, SINGLE
     Dates: start: 20151012, end: 20151012
  2. CISATRACURIUM (CISATRACURIUM BESILATE [Suspect]
     Active Substance: CISATRACURIUM BESYLATE
     Indication: INDUCTION OF ANAESTHESIA
     Dosage: 25 MG/HR, PRN
     Route: 042
     Dates: start: 20151012, end: 20151012
  3. PROPOFOL (PROPOFOL) [Suspect]
     Active Substance: PROPOFOL
     Dosage: SINGLE
     Route: 042
     Dates: start: 20151012, end: 20151012
  4. UGUROL (TRANEXAMIC ACID) [Suspect]
     Active Substance: TRANEXAMIC ACID
     Indication: PRODUCT USED FOR UNKNOWN INDICATION
     Dosage: SINGLE
     Dates: start: 20151012, end: 20151012
  5. UGUROL (TRANEXAMIC ACID) [Suspect]
     Active Substance: TRANEXAMIC ACID
     Dosage: 250 MG/HR
     Dates: start: 20151012, end: 20151012
  6. FENTANYL CITRATE (FENTANYL CITRATE) (FENTANYL CITRATE) [Suspect]
     Active Substance: FENTANYL CITRATE
     Indication: INDUCTION OF ANAESTHESIA
     Dosage: SINGLE
     Dates: start: 20151012, end: 20151012
  7. PROPOFOL (PROPOFOL) [Suspect]
     Active Substance: PROPOFOL
     Indication: INDUCTION OF ANAESTHESIA
     Dosage: 400 MG/HR, PRN
     Route: 042
     Dates: start: 20151012, end: 20151012

REACTIONS (3)
  - Vasodilation procedure [Recovered/Resolved]
  - Product use issue [Recovered/Resolved]
  - Blood pressure decreased [Recovered/Resolved]

NARRATIVE: CASE EVENT DATE: 20151012
